FAERS Safety Report 4998619-2 (Version None)
Quarter: 2006Q2

REPORT INFORMATION
  Report Type: 
  Country: None (occurrence: None)
  Receive Date: 20060509
  Receipt Date: 20060424
  Transmission Date: 20061013
  Serious: Yes (Hospitalization)
  Sender: FDA-Public Use
  Company Number: TNZFR200600049

PATIENT
  Age: 68 Year
  Sex: Male
  Weight: 52 kg

DRUGS (4)
  1. INNOHEP [Suspect]
     Dosage: 0.5 ML (ONCE DAILY), SUBCUTANEOUS
     Route: 058
  2. PHOSPHALUGEL (ALUMINIUM PHOSPHATE GEL) [Suspect]
     Dosage: ORAL
     Route: 048
     Dates: end: 20060310
  3. FERROUS SULFATE TAB [Suspect]
     Dosage: (AS NEEDED), ORAL
     Route: 048
     Dates: end: 20060313
  4. CISPLATIN [Suspect]
     Indication: LUNG NEOPLASM MALIGNANT
     Dosage: (ACCORDING TO CYCLE), INTRAVENOUS
     Route: 042
     Dates: start: 20051001, end: 20060130

REACTIONS (6)
  - DRUG TOXICITY [None]
  - DUODENITIS [None]
  - MALNUTRITION [None]
  - NEUTROPENIA [None]
  - PANCREATIC NEOPLASM [None]
  - RENAL FAILURE [None]
